FAERS Safety Report 4431319-6 (Version None)
Quarter: 2004Q3

REPORT INFORMATION
  Report Type: 
  Country: None (occurrence: None)
  Receive Date: 20040818
  Receipt Date: 20040805
  Transmission Date: 20050211
  Serious: Yes (Death, Life-Threatening, Hospitalization)
  Sender: FDA-Public Use
  Company Number: 208299

PATIENT
  Age: 84 Year
  Sex: Female

DRUGS (8)
  1. RITUXAN [Suspect]
     Indication: NON-HODGKIN'S LYMPHOMA
     Dates: start: 20040405, end: 20040719
  2. CYCLOPHOSPHAMIDE [Suspect]
     Dates: start: 20040405, end: 20040719
  3. DOXORUBICIN(DOXORUBICIN HYDROCHLORIDEM DOXORUBICIN) [Suspect]
     Dates: start: 20040405, end: 20040719
  4. VINCRISTINE [Suspect]
     Dates: start: 20040405, end: 20040719
  5. PREDNISONE [Suspect]
     Dates: start: 20040405, end: 20040719
  6. DARBEPOETIN ALFA (DARBEPOETIN ALFA) [Suspect]
  7. BETA BLOCKER NOS (BETA BLOCKERS NOS) [Concomitant]
  8. PEGFILGRASTIM (PEGFILGRASTIM) [Concomitant]

REACTIONS (13)
  - ARRHYTHMIA [None]
  - ATRIAL FIBRILLATION [None]
  - BRAIN NATRIURETIC PEPTIDE INCREASED [None]
  - CARDIAC FAILURE CONGESTIVE [None]
  - CARDIO-RESPIRATORY ARREST [None]
  - FEBRILE NEUTROPENIA [None]
  - HAEMOGLOBIN DECREASED [None]
  - HAEMORRHAGE [None]
  - HYPOKALAEMIA [None]
  - INFECTION [None]
  - MITRAL VALVE INCOMPETENCE [None]
  - THERAPEUTIC AGENT TOXICITY [None]
  - VENTRICULAR FIBRILLATION [None]
